FAERS Safety Report 10119254 (Version 5)
Quarter: 2015Q2

REPORT INFORMATION
  Report Type: Spontaneous
  Country: US (occurrence: US)
  Receive Date: 20140425
  Receipt Date: 20150402
  Transmission Date: 20150821
  Serious: No
  Sender: FDA-Public Use
  Company Number: US-PFIZER INC-2014112838

PATIENT
  Age: 74 Year
  Sex: Male

DRUGS (10)
  1. AVODART [Concomitant]
     Active Substance: DUTASTERIDE
     Dosage: UNK
  2. ACETAMINOPHEN. [Concomitant]
     Active Substance: ACETAMINOPHEN
     Dosage: UNK
  3. SUTENT [Suspect]
     Active Substance: SUNITINIB MALATE
     Dosage: HALF DOSE (-50%) CYCLIC (4 WEEKS ON 2 WEEKS OFF)
     Route: 048
  4. SUTENT [Suspect]
     Active Substance: SUNITINIB MALATE
     Dosage: 4 CAPSULES DAILY CYCLIC
     Route: 048
     Dates: end: 20140728
  5. SUTENT [Suspect]
     Active Substance: SUNITINIB MALATE
     Dosage: 3 CAPSULES CYCLIC (4 WEEKS ON 2 WEEKS OFF)
     Route: 048
     Dates: start: 20140909
  6. METOPROLOL TARTRATE. [Concomitant]
     Active Substance: METOPROLOL TARTRATE
     Dosage: UNK
  7. HYDROCHLOROTHIAZIDE. [Concomitant]
     Active Substance: HYDROCHLOROTHIAZIDE
     Dosage: UNK
  8. LOSARTAN POTASSIUM. [Concomitant]
     Active Substance: LOSARTAN POTASSIUM
     Dosage: UNK
  9. SUTENT [Suspect]
     Active Substance: SUNITINIB MALATE
     Indication: METASTATIC RENAL CELL CARCINOMA
     Dosage: 4 CAPSULES CYCLIC (4 WEEKS ON 2 WEEKS OFF)
     Route: 048
     Dates: start: 20140403
  10. MEGESTROL ACETATE. [Concomitant]
     Active Substance: MEGESTROL ACETATE

REACTIONS (4)
  - Decreased appetite [Recovered/Resolved]
  - Impaired healing [Recovered/Resolved]
  - Hypertension [Recovered/Resolved]
  - Stomatitis [Recovered/Resolved]

NARRATIVE: CASE EVENT DATE: 2014
